FAERS Safety Report 8872482 (Version 1)
Quarter: 2012Q4

REPORT INFORMATION
  Report Type: Spontaneous
  Country: US (occurrence: None)
  Receive Date: 20121031
  Receipt Date: 20121031
  Transmission Date: 20130627
  Serious: Yes (Life-Threatening, Other)
  Sender: FDA-Public Use
  Company Number: None

PATIENT
  Age: 80 Year
  Sex: Female

DRUGS (2)
  1. PE-TROP-CYLOP [Suspect]
     Indication: EYE OPERATION
     Dates: start: 20120910, end: 20120910
  2. PE-TROP-CYLOP [Suspect]
     Indication: EYE OPERATION
     Dates: start: 20120924, end: 20120924

REACTIONS (5)
  - Photophobia [None]
  - Musculoskeletal stiffness [None]
  - Night sweats [None]
  - Headache [None]
  - Malaise [None]
